FAERS Safety Report 7836771-1 (Version None)
Quarter: 2011Q4

REPORT INFORMATION
  Report Type: 
  Country: None (occurrence: None)
  Receive Date: 20111024
  Receipt Date: 20110801
  Transmission Date: 20120403
  Serious: No
  Sender: FDA-Public Use
  Company Number: US-ABBOTT-11P-163-0843135-00

PATIENT
  Sex: Female
  Weight: 63.56 kg

DRUGS (2)
  1. PERCOCET [Concomitant]
     Indication: PAIN MANAGEMENT
  2. LUPRON DEPOT [Suspect]
     Indication: ENDOMETRIOSIS
     Dates: start: 20110627

REACTIONS (3)
  - VULVOVAGINAL DRYNESS [None]
  - MIGRAINE [None]
  - HOT FLUSH [None]
